FAERS Safety Report 5647825-2 (Version None)
Quarter: 2008Q1

REPORT INFORMATION
  Report Type: 
  Country: None (occurrence: None)
  Receive Date: 20080303
  Receipt Date: 20080225
  Transmission Date: 20080703
  Serious: Yes (Other)
  Sender: FDA-Public Use
  Company Number: US-BOEHRINGER INGELHEIM GMBH, GERMANY-2008-BP-02756RO

PATIENT
  Age: 39 Year
  Sex: Female

DRUGS (4)
  1. CYCLOPHOSPHAMIDE [Suspect]
     Indication: BONE MARROW CONDITIONING REGIMEN
  2. PREDNISONE TAB [Suspect]
     Indication: GRAFT VERSUS HOST DISEASE
  3. BUSULFAN [Suspect]
     Indication: BONE MARROW CONDITIONING REGIMEN
  4. MYCOPHENOLATE MOFETIL [Suspect]
     Indication: GRAFT VERSUS HOST DISEASE

REACTIONS (3)
  - ADVERSE DRUG REACTION [None]
  - ALOPECIA AREATA [None]
  - GRAFT VERSUS HOST DISEASE [None]
